FAERS Safety Report 18065669 (Version 2)
Quarter: 2021Q4

REPORT INFORMATION
  Report Type: Report from Study
  Country: US (occurrence: US)
  Receive Date: 20200724
  Receipt Date: 20211217
  Transmission Date: 20220303
  Serious: Yes (Hospitalization, Other)
  Sender: FDA-Public Use
  Company Number: US-CELGENE-USA-20190202202

PATIENT
  Age: 44 Year
  Sex: Female

DRUGS (2)
  1. OTEZLA [Suspect]
     Active Substance: APREMILAST
     Indication: Psoriasis
     Dosage: 30 MILLIGRAM, BID
     Route: 048
     Dates: start: 20160929
  2. OTEZLA [Suspect]
     Active Substance: APREMILAST
     Indication: Dermatitis psoriasiform

REACTIONS (2)
  - Breast cancer female [Recovered/Resolved]
  - Mastitis [Not Recovered/Not Resolved]

NARRATIVE: CASE EVENT DATE: 20181212
